FAERS Safety Report 12688665 (Version 1)
Quarter: 2016Q3

REPORT INFORMATION
  Report Type: Spontaneous
  Country: US (occurrence: US)
  Receive Date: 20160826
  Receipt Date: 20160826
  Transmission Date: 20161109
  Serious: No
  Sender: FDA-Public Use
  Company Number: US-BAYER-2016-158364

PATIENT
  Age: 85 Year
  Sex: Male
  Weight: 90.24 kg

DRUGS (3)
  1. MIRALAX [Suspect]
     Active Substance: POLYETHYLENE GLYCOL 3350
     Indication: CONSTIPATION
     Dosage: UNK
     Route: 048
     Dates: start: 201606
  2. MIRALAX [Suspect]
     Active Substance: POLYETHYLENE GLYCOL 3350
     Indication: FAECES HARD
  3. MIRALAX [Suspect]
     Active Substance: POLYETHYLENE GLYCOL 3350
     Indication: HAEMORRHOIDS

REACTIONS (3)
  - Incorrect dose administered [None]
  - Product use issue [None]
  - Off label use [None]

NARRATIVE: CASE EVENT DATE: 2016
